FAERS Safety Report 9995070 (Version 2)
Quarter: 2014Q2

REPORT INFORMATION
  Report Type: Report from Study
  Country: US (occurrence: US)
  Receive Date: 20140311
  Receipt Date: 20140402
  Transmission Date: 20141212
  Serious: Yes (Hospitalization)
  Sender: FDA-Public Use
  Company Number: US-JNJFOC-20140302831

PATIENT
  Age: 16 Year
  Sex: Female
  Weight: 56.47 kg

DRUGS (8)
  1. REMICADE [Suspect]
     Indication: CROHN^S DISEASE
     Route: 042
     Dates: start: 20130729
  2. AZATHIOPRINE [Concomitant]
     Route: 065
  3. PREDNISONE [Concomitant]
     Route: 065
  4. FOLIC ACID [Concomitant]
     Route: 065
  5. 5-ASA [Concomitant]
     Route: 048
  6. PROBIOTICS [Concomitant]
     Route: 065
  7. PRILOSEC [Concomitant]
     Route: 065
  8. ZOFRAN [Concomitant]
     Route: 065

REACTIONS (1)
  - Crohn^s disease [Recovered/Resolved]
